FAERS Safety Report 24387836 (Version 1)
Quarter: 2024Q4

REPORT INFORMATION
  Report Type: Spontaneous
  Country: US (occurrence: None)
  Receive Date: 20241001
  Receipt Date: 20241001
  Transmission Date: 20250115
  Serious: Yes (Other)
  Sender: Public
  Company Number: None

PATIENT
  Age: 54 Year
  Sex: Female
  Weight: 53.8 kg

DRUGS (1)
  1. VANCOMYCIN HYDROCHLORIDE [Suspect]
     Active Substance: VANCOMYCIN HYDROCHLORIDE
     Indication: Cellulitis
     Dosage: OTHER FREQUENCY : FOR 3 TREATMENTS;?
     Route: 041
     Dates: start: 20240930, end: 20240930

REACTIONS (4)
  - Dialysis [None]
  - Burning sensation [None]
  - Ultrafiltration failure [None]
  - Drug hypersensitivity [None]

NARRATIVE: CASE EVENT DATE: 20240930
